FAERS Safety Report 25264877 (Version 1)
Quarter: 2025Q2

REPORT INFORMATION
  Report Type: Spontaneous
  Country: US (occurrence: None)
  Receive Date: 20250502
  Receipt Date: 20250502
  Transmission Date: 20250717
  Serious: Yes (Hospitalization)
  Sender: FDA-CTU
  Company Number: None

PATIENT
  Age: 42 Year
  Sex: Female

DRUGS (1)
  1. REMICADE [Suspect]
     Active Substance: INFLIXIMAB
     Indication: Sarcoidosis
     Route: 042
     Dates: start: 20250502

REACTIONS (5)
  - Infusion related reaction [None]
  - Pruritus [None]
  - Chest pain [None]
  - Chest discomfort [None]
  - Erythema [None]

NARRATIVE: CASE EVENT DATE: 20250502
